FAERS Safety Report 9529036 (Version 1)
Quarter: 2013Q1

REPORT INFORMATION
  Report Type: Spontaneous
  Country: US (occurrence: None)
  Receive Date: 20130329
  Receipt Date: 20130329
  Transmission Date: 20140127
  Serious: No
  Sender: FDA-Public Use
  Company Number: 1000040786

PATIENT
  Age: 33 Year
  Sex: Male

DRUGS (1)
  1. LINZESS [Suspect]
     Dates: start: 20121130, end: 20121130

REACTIONS (6)
  - Accidental exposure to product [None]
  - Hypersensitivity [None]
  - Dyspnoea [None]
  - Ocular hyperaemia [None]
  - Cough [None]
  - Dizziness [None]
